FAERS Safety Report 19899640 (Version 1)
Quarter: 2021Q3

REPORT INFORMATION
  Report Type: Spontaneous
  Country: US (occurrence: US)
  Receive Date: 20210929
  Receipt Date: 20210929
  Transmission Date: 20211014
  Serious: No
  Sender: FDA-Public Use
  Company Number: None

PATIENT
  Age: 74 Year
  Sex: Female

DRUGS (1)
  1. SUNITINIB CAP 50MG [Suspect]
     Active Substance: SUNITINIB
     Dosage: ?          OTHER DOSE:12.5;?
     Route: 048
     Dates: start: 202102

REACTIONS (7)
  - Ageusia [None]
  - Hypertension [None]
  - Diarrhoea [None]
  - Pain in extremity [None]
  - Dry eye [None]
  - Myalgia [None]
  - Abdominal pain upper [None]

NARRATIVE: CASE EVENT DATE: 20210704
